FAERS Safety Report 8389797-6 (Version None)
Quarter: 2012Q2

REPORT INFORMATION
  Report Type: 
  Country: None (occurrence: None)
  Receive Date: 20120529
  Receipt Date: 20120524
  Transmission Date: 20120825
  Serious: Yes (Hospitalization)
  Sender: FDA-Public Use
  Company Number: PHEH2012US009977

PATIENT
  Sex: Male
  Weight: 114 kg

DRUGS (1)
  1. RECLAST [Suspect]
     Dosage: UNK UKN, UNK
     Route: 042
     Dates: start: 20120504

REACTIONS (4)
  - ATRIOVENTRICULAR BLOCK COMPLETE [None]
  - PALLOR [None]
  - DIZZINESS [None]
  - DYSPNOEA [None]
